FAERS Safety Report 17648909 (Version 2)
Quarter: 2020Q2

REPORT INFORMATION
  Report Type: Report from Study
  Country: US (occurrence: US)
  Receive Date: 20200409
  Receipt Date: 20200415
  Transmission Date: 20200713
  Serious: Yes (Other)
  Sender: FDA-Public Use
  Company Number: US-BIOVITRUM-2020US0880

PATIENT
  Age: 49 Year
  Sex: Male

DRUGS (1)
  1. KINERET [Suspect]
     Active Substance: ANAKINRA
     Indication: STILL^S DISEASE
     Route: 058
     Dates: start: 20190912

REACTIONS (6)
  - Coronavirus infection [Unknown]
  - Pneumonia [Unknown]
  - Pleural effusion [Unknown]
  - Hypoaesthesia [Unknown]
  - Off label use [Unknown]
  - Pleural infection [Unknown]

NARRATIVE: CASE EVENT DATE: 20190912
